FAERS Safety Report 5524876-X (Version None)
Quarter: 2007Q4

REPORT INFORMATION
  Report Type: 
  Country: None (occurrence: None)
  Receive Date: 20071119
  Receipt Date: 20071106
  Transmission Date: 20080405
  Serious: Yes (Hospitalization)
  Sender: FDA-Public Use
  Company Number: 2006BI008759

PATIENT
  Age: 60 Year
  Sex: Male

DRUGS (18)
  1. ZEVALIN [Suspect]
     Indication: BONE MARROW CONDITIONING REGIMEN
     Dosage: 1174 MBQ; 1X; IV
     Route: 042
     Dates: start: 20060427, end: 20060427
  2. MABTHERA [Concomitant]
  3. MABTHERA [Concomitant]
  4. CARMUSTINE [Concomitant]
  5. ETOPOSIDE [Concomitant]
  6. ARACYTINE [Concomitant]
  7. MELPHALAN [Concomitant]
  8. PROZAC [Concomitant]
  9. MOPRAL [Concomitant]
  10. LASIX [Concomitant]
  11. TOPALGIC ^HOUDE^ [Concomitant]
  12. SOLU-MEDROL [Concomitant]
  13. PLITICAN [Concomitant]
  14. CYCLOPHOSPHAMIDE [Concomitant]
  15. PREDNISONE TAB [Concomitant]
  16. DEXAMETHASONE [Concomitant]
  17. CISPLATIN [Concomitant]
  18. CYMBICORT TURBUHALER [Concomitant]

REACTIONS (23)
  - AMYOTROPHY [None]
  - BLOOD CULTURE POSITIVE [None]
  - BLOOD PH INCREASED [None]
  - BLOOD POTASSIUM DECREASED [None]
  - BLOOD PRESSURE INCREASED [None]
  - DYSAESTHESIA [None]
  - ELECTROCARDIOGRAM ABNORMAL [None]
  - ENCEPHALOPATHY [None]
  - ESCHAR [None]
  - ESCHERICHIA URINARY TRACT INFECTION [None]
  - GASTRITIS [None]
  - HAEMOGLOBIN DECREASED [None]
  - HERPES VIRUS INFECTION [None]
  - HYPOTENSION [None]
  - INTERSTITIAL LUNG DISEASE [None]
  - NEUTROPHIL COUNT DECREASED [None]
  - NO THERAPEUTIC RESPONSE [None]
  - OESOPHAGITIS [None]
  - PLATELET COUNT DECREASED [None]
  - RESPIRATORY FAILURE [None]
  - STAPHYLOCOCCAL INFECTION [None]
  - VASOPLEGIA SYNDROME [None]
  - WHITE BLOOD CELL COUNT DECREASED [None]
